FAERS Safety Report 15963490 (Version 1)
Quarter: 2019Q1

REPORT INFORMATION
  Report Type: Spontaneous
  Country: US (occurrence: US)
  Receive Date: 20190214
  Receipt Date: 20190214
  Transmission Date: 20190417
  Serious: No
  Sender: FDA-Public Use
  Company Number: US-ALLERGAN-1901377US

PATIENT
  Age: 69 Year
  Sex: Male

DRUGS (2)
  1. EYLEA [Concomitant]
     Active Substance: AFLIBERCEPT
     Indication: RETINAL VEIN OCCLUSION
     Dosage: UNK
     Route: 047
  2. OZURDEX [Suspect]
     Active Substance: DEXAMETHASONE
     Indication: RETINAL VEIN OCCLUSION
     Dosage: 0.7 MG, SINGLE
     Route: 031
     Dates: start: 201708, end: 201708

REACTIONS (2)
  - Visual impairment [Recovered/Resolved]
  - Vitreous disorder [Recovered/Resolved]

NARRATIVE: CASE EVENT DATE: 201712
